FAERS Safety Report 24213899 (Version 1)
Quarter: 2024Q3

REPORT INFORMATION
  Report Type: Spontaneous
  Country: US (occurrence: None)
  Receive Date: 20240814
  Receipt Date: 20240814
  Transmission Date: 20241016
  Serious: No
  Sender: Public
  Company Number: None

PATIENT
  Age: 24 Year
  Sex: Male
  Weight: 159.3 kg

DRUGS (1)
  1. DOTAREM [Suspect]
     Active Substance: GADOTERATE MEGLUMINE
     Dosage: OTHER FREQUENCY : ONE TIME INJECTION;?
     Route: 040

REACTIONS (3)
  - Urticaria [None]
  - Pruritus [None]
  - Injection related reaction [None]

NARRATIVE: CASE EVENT DATE: 20240814
